FAERS Safety Report 10486557 (Version 1)
Quarter: 2014Q4

REPORT INFORMATION
  Report Type: Spontaneous
  Country: US (occurrence: US)
  Receive Date: 20141001
  Receipt Date: 20141001
  Transmission Date: 20150528
  Serious: No
  Sender: FDA-Public Use
  Company Number: US-PFIZER INC-2014266261

PATIENT
  Age: 56 Year
  Sex: Male

DRUGS (1)
  1. INLYTA [Suspect]
     Active Substance: AXITINIB
     Indication: RENAL CANCER
     Dosage: 10 MG, DAILY
     Dates: start: 20140725, end: 20140922

REACTIONS (8)
  - Diarrhoea [Unknown]
  - Nausea [Unknown]
  - Hypertension [Unknown]
  - Weight decreased [Unknown]
  - Fatigue [Unknown]
  - Vomiting [Unknown]
  - Constipation [Unknown]
  - Decreased appetite [Unknown]
